FAERS Safety Report 9841359 (Version 1)
Quarter: 2014Q1

REPORT INFORMATION
  Report Type: Spontaneous
  Country: US (occurrence: US)
  Receive Date: 20140124
  Receipt Date: 20140124
  Transmission Date: 20141002
  Serious: No
  Sender: FDA-Public Use
  Company Number: US-BAYER-2014-010198

PATIENT
  Age: 72 Year
  Sex: Female
  Weight: 58.5 kg

DRUGS (2)
  1. ALEVE CAPLET [Suspect]
     Indication: ARTHRITIS
     Dosage: 1 DF, UNK
     Route: 048
  2. BAYER ADVANCED ASPIRIN EXTRA STRENGTH [Suspect]
     Indication: ARTHRITIS
     Route: 048

REACTIONS (3)
  - Drug ineffective [None]
  - Incorrect drug administration duration [None]
  - Drug ineffective [None]
